FAERS Safety Report 12220375 (Version 1)
Quarter: 2016Q1

REPORT INFORMATION
  Report Type: Spontaneous
  Country: US (occurrence: None)
  Receive Date: 20160329
  Receipt Date: 20160329
  Transmission Date: 20160526
  Serious: No
  Sender: FDA-Public Use
  Company Number: None

PATIENT

DRUGS (1)
  1. MOMETASONE NASAL SPRAY, 50 MCG [Suspect]
     Active Substance: MOMETASONE
     Indication: SEASONAL ALLERGY
     Route: 045

REACTIONS (1)
  - Product barcode issue [None]

NARRATIVE: CASE EVENT DATE: 20160325
